FAERS Safety Report 14880547 (Version 5)
Quarter: 2018Q3

REPORT INFORMATION
  Report Type: Spontaneous
  Country: JP (occurrence: JP)
  Receive Date: 20180511
  Receipt Date: 20180713
  Transmission Date: 20181010
  Serious: Yes (Death, Life-Threatening, Other)
  Sender: FDA-Public Use
  Company Number: JP-GLAXOSMITHKLINE-JP2018JPN076399

PATIENT
  Age: 74 Year
  Sex: Female
  Weight: 44 kg

DRUGS (14)
  1. LAMICTAL [Suspect]
     Active Substance: LAMOTRIGINE
     Dosage: 100 MG, BID
     Route: 050
     Dates: start: 20180413, end: 20180419
  2. MESALAZINE [Concomitant]
     Active Substance: MESALAMINE
     Indication: COLITIS ULCERATIVE
     Dosage: 750 MG, TID
  3. PHENOBAL POWDER [Concomitant]
     Indication: SEIZURE
     Dosage: 60 MG, QD, BEFORE BEDTIME
     Dates: start: 20180317
  4. LAMICTAL [Suspect]
     Active Substance: LAMOTRIGINE
     Indication: SEIZURE
     Dosage: 25 MG, QD
     Route: 050
     Dates: start: 20180329, end: 20180405
  5. LAMICTAL [Suspect]
     Active Substance: LAMOTRIGINE
     Dosage: 75 MG, QD
     Route: 050
     Dates: start: 20180406, end: 20180412
  6. LAMICTAL [Suspect]
     Active Substance: LAMOTRIGINE
     Dosage: 150 MG, BID
     Route: 050
     Dates: start: 20180420, end: 20180425
  7. LAMICTAL [Suspect]
     Active Substance: LAMOTRIGINE
     Dosage: 100 MG, BID
     Route: 050
     Dates: start: 20180427, end: 20180427
  8. LAMICTAL [Suspect]
     Active Substance: LAMOTRIGINE
     Dosage: 50 MG, BID
     Route: 050
     Dates: start: 20180428, end: 20180501
  9. ALEVIATIN [Concomitant]
     Active Substance: PHENYTOIN SODIUM
     Indication: SEIZURE
     Dosage: 250 MG, QD, IN THE MORNING
     Dates: start: 20180316
  10. ELIQUIS [Concomitant]
     Active Substance: APIXABAN
     Indication: PROPHYLAXIS
     Dosage: 2.5 MG, BID
     Dates: start: 20180320
  11. PHENOBAL POWDER [Concomitant]
     Dosage: 30 MG, QD, BEFORE BEDTIME
  12. TAKECAB [Concomitant]
     Active Substance: VONOPRAZAN FUMURATE
     Dosage: 10 MG, BID
  13. VALPROATE SODIUM. [Concomitant]
     Active Substance: VALPROATE SODIUM
     Dosage: UNK
  14. LAMICTAL [Suspect]
     Active Substance: LAMOTRIGINE
     Dosage: 200 MG, BID
     Route: 050
     Dates: start: 20180426, end: 20180426

REACTIONS (9)
  - Stridor [Recovered/Resolved]
  - Pneumonia staphylococcal [Fatal]
  - Sputum retention [Unknown]
  - Vocal cord paralysis [Unknown]
  - Tracheal stenosis [Recovered/Resolved]
  - Drug titration error [Unknown]
  - Depressed level of consciousness [Unknown]
  - Respiratory failure [Fatal]
  - Off label use [Unknown]

NARRATIVE: CASE EVENT DATE: 201804
